FAERS Safety Report 7478402-9 (Version None)
Quarter: 2011Q2

REPORT INFORMATION
  Report Type: 
  Country: None (occurrence: None)
  Receive Date: 20110513
  Receipt Date: 20100602
  Transmission Date: 20111010
  Serious: Yes (Other)
  Sender: FDA-Public Use
  Company Number: US-PFIZER INC-2010053426

PATIENT
  Age: 33 Year
  Sex: Female
  Weight: 72.562 kg

DRUGS (2)
  1. CELEBREX [Suspect]
     Indication: EXOSTOSIS
     Dosage: 100 MG, 2X/DAY
     Route: 048
     Dates: start: 19920101, end: 20091201
  2. CELEBREX [Suspect]
     Indication: ROTATOR CUFF SYNDROME

REACTIONS (2)
  - GASTROOESOPHAGEAL REFLUX DISEASE [None]
  - DRUG INEFFECTIVE [None]
